FAERS Safety Report 5266365-6 (Version None)
Quarter: 2007Q1

REPORT INFORMATION
  Report Type: 
  Country: None (occurrence: None)
  Receive Date: 20070315
  Receipt Date: 20070309
  Transmission Date: 20070707
  Serious: Yes (Hospitalization)
  Sender: FDA-Public Use
  Company Number: US-MERCK-0703USA01516

PATIENT
  Age: 48 Year
  Sex: Female
  Weight: 153 kg

DRUGS (12)
  1. JANUVIA [Suspect]
     Indication: DIABETES MELLITUS
     Route: 048
     Dates: start: 20070208, end: 20070213
  2. METFORMIN [Concomitant]
     Route: 048
  3. LASIX [Concomitant]
     Route: 048
  4. TRILEPTAL [Concomitant]
     Route: 048
  5. [THERAPY UNSPECIFIED] [Concomitant]
     Route: 048
  6. HYDRALAZINE [Concomitant]
     Route: 048
  7. XANAX [Concomitant]
     Route: 048
  8. ASPIRIN [Concomitant]
     Route: 048
  9. DIOVAN [Concomitant]
     Route: 048
  10. MAGNESIUM (UNSPECIFIED) [Concomitant]
     Route: 048
  11. ZETIA [Concomitant]
     Route: 048
     Dates: start: 20070208
  12. POTASSIUM (UNSPECIFIED) [Concomitant]
     Route: 048

REACTIONS (2)
  - ADVERSE EVENT [None]
  - CARDIAC FAILURE [None]
